FAERS Safety Report 18076900 (Version 3)
Quarter: 2020Q4

REPORT INFORMATION
  Report Type: Spontaneous
  Country: US (occurrence: US)
  Receive Date: 20200728
  Receipt Date: 20201015
  Transmission Date: 20210113
  Serious: No
  Sender: FDA-Public Use
  Company Number: US-SA-2020SA193760

PATIENT

DRUGS (1)
  1. LANTUS [Suspect]
     Active Substance: INSULIN GLARGINE
     Dosage: 50 IU, BID
     Route: 065

REACTIONS (3)
  - Device operational issue [Unknown]
  - Inappropriate schedule of product administration [Unknown]
  - Injection site pain [Unknown]
